FAERS Safety Report 15575236 (Version 3)
Quarter: 2020Q3

REPORT INFORMATION
  Report Type: Report from Study
  Country: US (occurrence: US)
  Receive Date: 20181101
  Receipt Date: 20200707
  Transmission Date: 20201102
  Serious: Yes (Hospitalization, Other)
  Sender: FDA-Public Use
  Company Number: US-SA-2018SA296717

PATIENT

DRUGS (3)
  1. INSULIN GLARGINE [Suspect]
     Active Substance: INSULIN GLARGINE
     Indication: TYPE 2 DIABETES MELLITUS
     Dosage: 80 IU, BID
     Route: 058
     Dates: start: 1990
  2. INSULIN GLARGINE [Suspect]
     Active Substance: INSULIN GLARGINE
     Dosage: 160 IU, QD
     Route: 058
     Dates: start: 201907
  3. HUMALOG [Concomitant]
     Active Substance: INSULIN LISPRO
     Dosage: 50 IU, TID

REACTIONS (10)
  - Headache [Not Recovered/Not Resolved]
  - Chronic kidney disease [Not Recovered/Not Resolved]
  - Expired product administered [Unknown]
  - Renal disorder [Recovered/Resolved]
  - Blood glucose increased [Recovered/Resolved]
  - Vision blurred [Not Recovered/Not Resolved]
  - Diabetic retinopathy [Not Recovered/Not Resolved]
  - Tremor [Not Recovered/Not Resolved]
  - Renal impairment [Not Recovered/Not Resolved]
  - Inappropriate schedule of product administration [Unknown]

NARRATIVE: CASE EVENT DATE: 1990
